FAERS Safety Report 10031696 (Version 2)
Quarter: 2014Q2

REPORT INFORMATION
  Report Type: Spontaneous
  Country: US (occurrence: US)
  Receive Date: 20140324
  Receipt Date: 20140523
  Transmission Date: 20141212
  Serious: No
  Sender: FDA-Public Use
  Company Number: US-PFIZER INC-2014081592

PATIENT
  Age: 66 Year
  Sex: Female
  Weight: 75 kg

DRUGS (4)
  1. ESTRING [Suspect]
     Indication: BLADDER PROLAPSE
     Dosage: UNK
     Route: 067
  2. ESTRING [Suspect]
     Indication: PROPHYLAXIS
  3. PREMARIN [Concomitant]
     Dosage: UNK
     Route: 048
  4. XANAX [Concomitant]
     Dosage: UNK

REACTIONS (1)
  - Fungal infection [Recovered/Resolved]
